FAERS Safety Report 6824848-9 (Version None)
Quarter: 2010Q3

REPORT INFORMATION
  Report Type: 
  Country: None (occurrence: None)
  Receive Date: 20100708
  Receipt Date: 20061210
  Transmission Date: 20110219
  Serious: No
  Sender: FDA-Public Use
  Company Number: US-PFIZER INC-2006153939

PATIENT
  Sex: Female
  Weight: 63.5 kg

DRUGS (2)
  1. CHANTIX [Suspect]
     Indication: SMOKING CESSATION THERAPY
     Route: 048
     Dates: start: 20061125
  2. ZANTAC [Suspect]
     Indication: DYSPEPSIA
     Dates: start: 20060101

REACTIONS (3)
  - DYSPEPSIA [None]
  - PAIN [None]
  - THROAT IRRITATION [None]
